FAERS Safety Report 6341721-3 (Version None)
Quarter: 2009Q3

REPORT INFORMATION
  Report Type: 
  Country: None (occurrence: None)
  Receive Date: 20090904
  Receipt Date: 20090827
  Transmission Date: 20100115
  Serious: Yes (Hospitalization, Other)
  Sender: FDA-Public Use
  Company Number: US-JNJFOC-20090809326

PATIENT
  Sex: Female
  Weight: 40.5 kg

DRUGS (2)
  1. INFLIXIMAB [Suspect]
     Indication: COLITIS ULCERATIVE
     Route: 042
  2. 5-AMINOSALICYLIC ACID [Concomitant]

REACTIONS (5)
  - COLITIS ULCERATIVE [None]
  - COLOSTOMY CLOSURE [None]
  - DEHYDRATION [None]
  - HYPONATRAEMIA [None]
  - SMALL INTESTINAL OBSTRUCTION [None]
